FAERS Safety Report 21763836 (Version 3)
Quarter: 2023Q1

REPORT INFORMATION
  Report Type: Report from Study
  Country: GB (occurrence: GB)
  Receive Date: 20221222
  Receipt Date: 20230213
  Transmission Date: 20230417
  Serious: Yes (Hospitalization, Other)
  Sender: FDA-Public Use
  Company Number: GB-ABBVIE-4246031

PATIENT
  Age: 74 Year
  Sex: Female
  Weight: 67 kg

DRUGS (12)
  1. RINVOQ [Suspect]
     Active Substance: UPADACITINIB
     Indication: Rheumatoid arthritis
     Route: 048
     Dates: start: 20220803, end: 20221217
  2. RINVOQ [Suspect]
     Active Substance: UPADACITINIB
     Indication: Rheumatoid arthritis
     Route: 048
     Dates: start: 20221225
  3. CHOLECALCIFEROL [Concomitant]
     Active Substance: CHOLECALCIFEROL
     Indication: Pathological fracture prophylaxis
     Route: 048
     Dates: start: 20221218
  4. CHOLECALCIFEROL [Concomitant]
     Active Substance: CHOLECALCIFEROL
     Indication: Pathological fracture prophylaxis
     Route: 048
     Dates: start: 20221218
  5. ALENDRONIC ACID [Concomitant]
     Active Substance: ALENDRONIC ACID
     Indication: Pathological fracture prophylaxis
     Route: 048
     Dates: start: 20221218
  6. MORPHINE SULFATE [Concomitant]
     Active Substance: MORPHINE SULFATE
     Indication: Pain
     Dosage: 5-10MG
     Route: 048
     Dates: start: 20221217, end: 20221228
  7. MORPHINE SULFATE [Concomitant]
     Active Substance: MORPHINE SULFATE
     Indication: Pain
     Route: 048
     Dates: start: 20221217
  8. ONDANSETRON [Concomitant]
     Active Substance: ONDANSETRON
     Indication: Nausea
     Route: 048
     Dates: start: 20221218, end: 20221228
  9. ONDANSETRON [Concomitant]
     Active Substance: ONDANSETRON
     Indication: Nausea
     Dates: start: 20221217
  10. laxido Sachet [Concomitant]
     Indication: Constipation
     Dosage: 1-2
     Route: 048
     Dates: start: 20221217, end: 20221228
  11. ATORVASTATIN [Concomitant]
     Active Substance: ATORVASTATIN
     Indication: Nausea
     Route: 048
     Dates: start: 202210
  12. Fragmin solution [Concomitant]
     Indication: Anticoagulant therapy
     Route: 058
     Dates: start: 20221218

REACTIONS (6)
  - Fall [Recovering/Resolving]
  - Femoral neck fracture [Recovering/Resolving]
  - Humerus fracture [Recovering/Resolving]
  - Upper limb fracture [Unknown]
  - Hip fracture [Unknown]
  - Mobility decreased [Unknown]

NARRATIVE: CASE EVENT DATE: 20221201
